FAERS Safety Report 6476622-3 (Version None)
Quarter: 2009Q4

REPORT INFORMATION
  Report Type: 
  Country: None (occurrence: None)
  Receive Date: 20091204
  Receipt Date: 20091204
  Transmission Date: 20100525
  Serious: Yes (Hospitalization)
  Sender: FDA-Public Use
  Company Number: None

PATIENT
  Age: 54 Year
  Sex: Female
  Weight: 68.9467 kg

DRUGS (8)
  1. SAVELLA [Suspect]
     Indication: FIBROMYALGIA
     Dosage: 100 MG BID PO 3 WEEKS AGO
     Route: 048
     Dates: end: 20091103
  2. CYMBALTA [Suspect]
     Indication: FIBROMYALGIA
     Dosage: PO PRIOR TO SAVELLA
     Route: 048
  3. LAMICTAL [Concomitant]
  4. PREMARIN [Concomitant]
  5. CLONAZEPAM [Concomitant]
  6. ZANTAC [Concomitant]
  7. VICODIN [Concomitant]
  8. CELEXA [Concomitant]

REACTIONS (3)
  - DRUG INEFFECTIVE [None]
  - SUICIDAL IDEATION [None]
  - URINARY HESITATION [None]
